FAERS Safety Report 4739088-7 (Version None)
Quarter: 2005Q3

REPORT INFORMATION
  Report Type: 
  Country: None (occurrence: None)
  Receive Date: 20050810
  Receipt Date: 20050412
  Transmission Date: 20060218
  Serious: No
  Sender: FDA-Public Use
  Company Number: US-GLAXOSMITHKLINE-A0553802A

PATIENT
  Sex: Male

DRUGS (6)
  1. PAXIL [Suspect]
     Indication: PREMATURE EJACULATION
     Dosage: 12.5MG PER DAY
     Route: 048
  2. ADVICOR [Concomitant]
  3. GLUCOVANCE [Concomitant]
  4. ACTOS [Concomitant]
  5. ACIPHEX [Concomitant]
  6. VITAMIN [Concomitant]

REACTIONS (2)
  - CONFUSIONAL STATE [None]
  - EMOTIONAL DISORDER [None]
